FAERS Safety Report 6814747-0 (Version None)
Quarter: 2010Q3

REPORT INFORMATION
  Report Type: 
  Country: None (occurrence: None)
  Receive Date: 20100702
  Receipt Date: 20100628
  Transmission Date: 20110219
  Serious: Yes (Death, Life-Threatening, Other)
  Sender: FDA-Public Use
  Company Number: FR-ROCHE-687694

PATIENT
  Sex: Female
  Weight: 55 kg

DRUGS (6)
  1. APRANAX [Suspect]
     Dosage: 1 TABLET IN THE MORNING AND 1 TABLET IN THE EVENING
     Route: 065
     Dates: start: 20090401, end: 20090415
  2. ARAVA [Suspect]
     Route: 048
     Dates: start: 20090312, end: 20090415
  3. PRETERAX [Concomitant]
     Dates: start: 20060101
  4. CORTANCYL [Concomitant]
     Dates: end: 20060301
  5. CORTANCYL [Concomitant]
     Dates: start: 20070701
  6. MOPRAL [Concomitant]
     Dates: start: 20080801

REACTIONS (12)
  - CYTOLYTIC HEPATITIS [None]
  - DEHYDRATION [None]
  - DRUG RASH WITH EOSINOPHILIA AND SYSTEMIC SYMPTOMS [None]
  - ENTEROCOLITIS INFECTIOUS [None]
  - HISTIOCYTOSIS HAEMATOPHAGIC [None]
  - HYPOALBUMINAEMIA [None]
  - HYPONATRAEMIA [None]
  - INFLAMMATION [None]
  - ODYNOPHAGIA [None]
  - PSORIATIC ARTHROPATHY [None]
  - STEVENS-JOHNSON SYNDROME [None]
  - TOXIC SKIN ERUPTION [None]
